FAERS Safety Report 8826834 (Version 1)
Quarter: 2012Q4

REPORT INFORMATION
  Report Type: 
  Country: US (occurrence: US)
  Receive Date: 20121008
  Receipt Date: 20121008
  Transmission Date: 20130627
  Serious: No
  Sender: FDA-Public Use
  Company Number: US-009507513-1209USA010595

PATIENT
  Sex: Female

DRUGS (2)
  1. PEGINTRON [Suspect]
     Indication: HEPATITIS C
     Dosage: UNK
     Dates: start: 20120826
  2. REBETOL [Suspect]
     Dosage: UNK
     Route: 048
     Dates: start: 20120826

REACTIONS (3)
  - Insomnia [Unknown]
  - Fatigue [Unknown]
  - Chills [Unknown]
